FAERS Safety Report 18088597 (Version 4)
Quarter: 2020Q3

REPORT INFORMATION
  Report Type: Spontaneous
  Country: US (occurrence: US)
  Receive Date: 20200729
  Receipt Date: 20200825
  Transmission Date: 20201103
  Serious: Yes (Other)
  Sender: FDA-Public Use
  Company Number: US-009507513-2007USA009643

PATIENT
  Age: 25 Year
  Sex: Female
  Weight: 151.47 kg

DRUGS (2)
  1. NEXPLANON [Suspect]
     Active Substance: ETONOGESTREL
     Indication: CONTRACEPTION
     Dosage: 1 IMPLANTED ROD, LEFT UPPER ARM
     Route: 059
     Dates: end: 20200615
  2. NEXPLANON [Suspect]
     Active Substance: ETONOGESTREL
     Indication: CONTRACEPTION
     Dosage: 1 DOSAGE FORM
     Route: 059
     Dates: start: 20200615, end: 20200723

REACTIONS (4)
  - Device dislocation [Recovered/Resolved]
  - Skin infection [Unknown]
  - Device expulsion [Recovered/Resolved]
  - Implant site cellulitis [Unknown]

NARRATIVE: CASE EVENT DATE: 2020
